FAERS Safety Report 8179963 (Version 5)
Quarter: 2014Q2

REPORT INFORMATION
  Report Type: Report from Study
  Country: US (occurrence: US)
  Receive Date: 20111013
  Receipt Date: 20140619
  Transmission Date: 20141212
  Serious: Yes (Hospitalization, Other)
  Sender: FDA-Public Use
  Company Number: US-ACTELION-A-NJ2011-54933

PATIENT
  Age: 66 Year
  Sex: Male

DRUGS (8)
  1. TRACLEER [Suspect]
     Indication: PULMONARY ARTERIAL HYPERTENSION
     Dosage: 125 MG, BID
     Route: 048
     Dates: start: 2006
  2. TRACLEER [Suspect]
     Dosage: 62.5 UNK, UNK
     Route: 048
     Dates: start: 2006
  3. LASIX [Concomitant]
     Dosage: 40 MG, QD
  4. SPIRONOLACTONE [Concomitant]
     Dosage: 100 MG, QD
  5. SPIRONOLACTONE [Concomitant]
     Dosage: 50 MG, QD
     Dates: end: 201310
  6. XARELTO [Concomitant]
     Dosage: 20 MG, QD
  7. XARELTO [Concomitant]
     Dosage: 10 MG, QD
     Dates: end: 201310
  8. FLOMAX [Concomitant]
     Dosage: 0.4 MG, QD
     Dates: start: 1999

REACTIONS (9)
  - Hepatic cancer [Unknown]
  - Lung neoplasm malignant [Not Recovered/Not Resolved]
  - Ascites [Not Recovered/Not Resolved]
  - Pleural effusion [Unknown]
  - Dyspnoea [Unknown]
  - Liver disorder [Unknown]
  - Fluid retention [Unknown]
  - Arrhythmia [Recovered/Resolved]
  - Asthenia [Not Recovered/Not Resolved]
